FAERS Safety Report 13611981 (Version 1)
Quarter: 2017Q2

REPORT INFORMATION
  Report Type: Spontaneous
  Country: US (occurrence: US)
  Receive Date: 20170605
  Receipt Date: 20170605
  Transmission Date: 20170830
  Serious: Yes (Hospitalization)
  Sender: FDA-Public Use
  Company Number: US-SMITH AND NEPHEW, INC-2017SMT00390

PATIENT
  Age: 66 Year
  Sex: Female

DRUGS (1)
  1. REGRANEX [Suspect]
     Active Substance: BECAPLERMIN
     Dosage: UNK
     Dates: start: 201704

REACTIONS (5)
  - Loss of personal independence in daily activities [Unknown]
  - Wound infection [Unknown]
  - Off label use [Unknown]
  - Hospitalisation [Unknown]
  - Bedridden [Unknown]

NARRATIVE: CASE EVENT DATE: 201704
